FAERS Safety Report 16747469 (Version 1)
Quarter: 2019Q3

REPORT INFORMATION
  Report Type: Spontaneous
  Country: CA (occurrence: CA)
  Receive Date: 20190827
  Receipt Date: 20190827
  Transmission Date: 20191005
  Serious: Yes (Other)
  Sender: FDA-Public Use
  Company Number: CA-TEVA-2019-CA-1099329

PATIENT
  Age: 56 Year
  Sex: Male

DRUGS (1)
  1. TEVA-EFAVIRENZ W/ EMTRICITABINE W/ TENOFOVIR [Suspect]
     Active Substance: EFAVIRENZ\EMTRICITABINE\TENOFOVIR DISOPROXIL FUMARATE
     Indication: HIV INFECTION

REACTIONS (2)
  - Product substitution issue [Unknown]
  - Abdominal discomfort [Unknown]
